FAERS Safety Report 20167707 (Version 2)
Quarter: 2022Q1

REPORT INFORMATION
  Report Type: Spontaneous
  Country: US (occurrence: US)
  Receive Date: 20211209
  Receipt Date: 20220113
  Transmission Date: 20220423
  Serious: Yes (Death, Other)
  Sender: FDA-Public Use
  Company Number: US-AMGEN-USASP2021195010

PATIENT
  Sex: Male

DRUGS (6)
  1. OTEZLA [Suspect]
     Active Substance: APREMILAST
     Indication: Psoriatic arthropathy
     Dosage: 30 MILLIGRAM, BID
     Route: 065
     Dates: start: 20200131
  2. PREZISTA [Concomitant]
     Active Substance: DARUNAVIR ETHANOLATE
     Dosage: UNK
  3. ISENTRESS [Concomitant]
     Active Substance: RALTEGRAVIR POTASSIUM
     Dosage: UNK
  4. SELZENTRY [Concomitant]
     Active Substance: MARAVIROC
     Dosage: UNK
  5. INTELENCE [Concomitant]
     Active Substance: ETRAVIRINE
     Dosage: UNK
  6. RITONAVIR [Concomitant]
     Active Substance: RITONAVIR
     Dosage: UNK

REACTIONS (1)
  - Death [Fatal]
